FAERS Safety Report 4709280-6 (Version None)
Quarter: 2005Q3

REPORT INFORMATION
  Report Type: 
  Country: None (occurrence: None)
  Receive Date: 20050708
  Receipt Date: 20050307
  Transmission Date: 20060218
  Serious: Yes (Life-Threatening, Hospitalization, Disabling)
  Sender: FDA-Public Use
  Company Number: 2005SE01379

PATIENT
  Age: 22706 Day
  Sex: Male
  Weight: 70 kg

DRUGS (3)
  1. BLOPRESS TABLETS 4 [Suspect]
     Indication: HYPERTENSION
     Route: 048
     Dates: end: 20050221
  2. ALLEGRA [Suspect]
     Indication: SEASONAL ALLERGY
     Route: 048
     Dates: end: 20050221
  3. HACHIMIJIO-GAN [Concomitant]
     Indication: SEASONAL ALLERGY
     Route: 048
     Dates: end: 20050221

REACTIONS (5)
  - ANEURYSM [None]
  - AORTIC DISSECTION [None]
  - CAROTID ARTERY ANEURYSM [None]
  - CEREBRAL INFARCTION [None]
  - HYPOTENSION [None]
